FAERS Safety Report 15408547 (Version 2)
Quarter: 2018Q3

REPORT INFORMATION
  Report Type: Report from Study
  Country: SK (occurrence: SK)
  Receive Date: 20180920
  Receipt Date: 20180928
  Transmission Date: 20181010
  Serious: Yes (Life-Threatening, Hospitalization)
  Sender: FDA-Public Use
  Company Number: SK-ASTRAZENECA-2018SF19025

PATIENT
  Age: 31370 Day
  Sex: Male

DRUGS (13)
  1. RAWEL SR [Concomitant]
     Indication: HYPERTENSION
     Route: 048
     Dates: start: 20180911
  2. NITROMINT [Concomitant]
     Active Substance: NITROGLYCERIN
     Indication: HYPERTENSION
     Dosage: 1 PUFF DAILY
     Route: 002
     Dates: start: 20180911
  3. ANOPYRIN [Concomitant]
     Active Substance: ASPIRIN
     Indication: CEREBROVASCULAR ACCIDENT
     Route: 048
     Dates: start: 20180909, end: 20180909
  4. CAVINTON [Concomitant]
     Active Substance: VINPOCETINE
     Indication: CEREBROVASCULAR ACCIDENT
     Route: 042
     Dates: start: 20180909, end: 20180917
  5. TENSIOMIN [Concomitant]
     Active Substance: CAPTOPRIL
     Indication: HYPERTENSION
     Route: 048
     Dates: start: 20180909
  6. LUCETAM [Concomitant]
     Indication: CEREBROVASCULAR ACCIDENT
     Route: 042
     Dates: start: 20180909, end: 20180917
  7. AZD6140 [Suspect]
     Active Substance: TICAGRELOR
     Indication: CEREBROVASCULAR ACCIDENT PROPHYLAXIS
     Route: 048
     Dates: start: 20180909
  8. CAVINTON [Concomitant]
     Active Substance: VINPOCETINE
     Indication: CEREBROVASCULAR ACCIDENT
     Route: 048
     Dates: start: 20180909, end: 20180917
  9. ONDANSETRON [Concomitant]
     Active Substance: ONDANSETRON
     Indication: VOMITING
     Route: 042
     Dates: start: 20180909
  10. GOPTEN [Concomitant]
     Active Substance: TRANDOLAPRIL
     Indication: HYPERTENSION
     Route: 048
  11. TARKA [Concomitant]
     Active Substance: TRANDOLAPRIL\VERAPAMIL HYDROCHLORIDE
     Indication: HYPERTENSION
     Route: 048
  12. ANOPYRIN [Concomitant]
     Active Substance: ASPIRIN
     Indication: CEREBROVASCULAR ACCIDENT
     Route: 048
     Dates: start: 20180910, end: 20180917
  13. EBRANTIL [Concomitant]
     Active Substance: URAPIDIL
     Indication: HYPERTENSION
     Route: 048
     Dates: start: 20180909, end: 20180911

REACTIONS (1)
  - Oesophageal ulcer haemorrhage [Recovered/Resolved]

NARRATIVE: CASE EVENT DATE: 20180917
